FAERS Safety Report 9415805 (Version 1)
Quarter: 2013Q3

REPORT INFORMATION
  Report Type: Spontaneous
  Country: US (occurrence: US)
  Receive Date: 20130724
  Receipt Date: 20130724
  Transmission Date: 20140515
  Serious: Yes (Other)
  Sender: FDA-Public Use
  Company Number: US-ROCHE-1235780

PATIENT
  Sex: Male

DRUGS (8)
  1. ZELBORAF [Suspect]
     Indication: MALIGNANT MELANOMA
     Route: 048
     Dates: start: 20130122
  2. TRAZODONE [Concomitant]
     Route: 048
  3. GABAPENTIN [Concomitant]
     Route: 048
  4. ACYCLOVIR [Concomitant]
     Route: 065
  5. LEVOTHYROXINE [Concomitant]
     Route: 048
  6. ASPIRIN [Concomitant]
     Route: 065
  7. CLONAZEPAM [Concomitant]
     Route: 048
  8. NASONEX [Concomitant]
     Route: 065

REACTIONS (4)
  - Pathological fracture [Recovering/Resolving]
  - Dysgeusia [Unknown]
  - Photosensitivity reaction [Unknown]
  - Alopecia [Unknown]
